FAERS Safety Report 10439281 (Version 1)
Quarter: 2014Q3

REPORT INFORMATION
  Report Type: Spontaneous
  Country: US (occurrence: US)
  Receive Date: 20140908
  Receipt Date: 20140908
  Transmission Date: 20150326
  Serious: No
  Sender: FDA-Public Use
  Company Number: US-BRISTOL-MYERS SQUIBB COMPANY-19201623

PATIENT
  Age: 8 Year
  Sex: Male
  Weight: 24.04 kg

DRUGS (2)
  1. ABILIFY [Suspect]
     Active Substance: ARIPIPRAZOLE
     Indication: TOURETTE^S DISORDER
     Dosage: ABILIFY 2MG SAMPLES FOR 1 WEEK AND INCREASED TO 5MG SAMPLES THE NEXT WEEK
  2. CLONIDINE. [Concomitant]
     Active Substance: CLONIDINE

REACTIONS (2)
  - Headache [Unknown]
  - Drug ineffective [Unknown]
